FAERS Safety Report 22084790 (Version 5)
Quarter: 2024Q2

REPORT INFORMATION
  Report Type: Spontaneous
  Country: US (occurrence: US)
  Receive Date: 20230310
  Receipt Date: 20240422
  Transmission Date: 20240716
  Serious: Yes (Hospitalization, Other)
  Sender: FDA-Public Use
  Company Number: US-PFIZER INC-PV202300045565

PATIENT
  Age: 59 Year
  Sex: Female

DRUGS (2)
  1. XELJANZ [Suspect]
     Active Substance: TOFACITINIB CITRATE
     Indication: Rheumatoid arthritis
     Dosage: 5 MG, 2X/DAY
     Route: 048
     Dates: start: 201401
  2. XELJANZ [Suspect]
     Active Substance: TOFACITINIB CITRATE
     Indication: Ankylosing spondylitis
     Dosage: TWICE DAILY
     Route: 048
     Dates: start: 2014

REACTIONS (12)
  - Vulval cancer [Unknown]
  - Product dose omission issue [Unknown]
  - Memory impairment [Unknown]
  - Condition aggravated [Unknown]
  - Aortic dilatation [Unknown]
  - Fatigue [Unknown]
  - Tenderness [Unknown]
  - COVID-19 [Unknown]
  - Movement disorder [Unknown]
  - Arthralgia [Unknown]
  - Joint stiffness [Unknown]
  - Brain fog [Not Recovered/Not Resolved]

NARRATIVE: CASE EVENT DATE: 20220101
